FAERS Safety Report 5711278-6 (Version None)
Quarter: 2008Q2

REPORT INFORMATION
  Report Type: 
  Country: None (occurrence: None)
  Receive Date: 20080418
  Receipt Date: 20080418
  Transmission Date: 20081010
  Serious: No
  Sender: FDA-Public Use
  Company Number: None

PATIENT
  Age: 38 Year
  Sex: Female
  Weight: 67.1324 kg

DRUGS (1)
  1. REGLAN [Suspect]
     Indication: PROPHYLAXIS OF NAUSEA AND VOMITING
     Dosage: 10 MG PO  1 TIME
     Route: 048
     Dates: start: 20080415, end: 20080415

REACTIONS (8)
  - CAESAREAN SECTION [None]
  - DRUG EXPOSURE DURING PREGNANCY [None]
  - ENDOMETRIOSIS [None]
  - FEELING ABNORMAL [None]
  - MENTAL DISORDER [None]
  - POST PROCEDURAL COMPLICATION [None]
  - RESTLESSNESS [None]
  - SUICIDAL IDEATION [None]
